FAERS Safety Report 7808870-1 (Version None)
Quarter: 2011Q4

REPORT INFORMATION
  Report Type: 
  Country: None (occurrence: None)
  Receive Date: 20111012
  Receipt Date: 20111010
  Transmission Date: 20120403
  Serious: Yes (Death)
  Sender: FDA-Public Use
  Company Number: PHEH2011US06445

PATIENT
  Sex: Male
  Weight: 86.168 kg

DRUGS (14)
  1. EXJADE [Suspect]
     Dosage: 500 MG, DAILY
     Route: 048
     Dates: start: 20110606, end: 20110801
  2. EXJADE [Suspect]
     Dosage: 500 MG, BID
     Route: 048
     Dates: start: 20110802, end: 20110830
  3. AMICAR [Concomitant]
     Dosage: 500 MG, UNK
     Dates: start: 20101013
  4. LANTUS [Concomitant]
     Dosage: 100 U/ML, UNK
     Dates: start: 20101013
  5. ARANESP [Concomitant]
     Dosage: 25 UG/ML, UNK
     Dates: start: 20101013
  6. NOVOLOG [Concomitant]
     Dates: start: 20101013
  7. ALDACTONE [Concomitant]
     Dosage: 25 MG, UNK
     Dates: start: 20101013
  8. HYDROCHLOROTHIAZIDE [Concomitant]
     Dosage: 12.5 MG, UNK
     Dates: start: 20101013
  9. EXJADE [Suspect]
     Indication: MYELODYSPLASTIC SYNDROME
     Dosage: 1500 MG, DAILY
     Route: 048
     Dates: start: 20101007, end: 20110207
  10. LANOXIN [Concomitant]
     Dosage: 125 UG, UNK
     Dates: start: 20101013
  11. POTASSIUM CITRATE [Concomitant]
     Dosage: 10 MEQ, UNK
     Dates: start: 20101013
  12. FOLIC ACID [Concomitant]
     Dosage: 1 MG, UNK
     Dates: start: 20101013
  13. BUMETANIDE [Concomitant]
     Dosage: 1 MG, UNK
     Dates: start: 20101013
  14. HUMULIN R [Concomitant]
     Dosage: 100 U/ML, UNK
     Dates: start: 20101013

REACTIONS (1)
  - DEATH [None]
